FAERS Safety Report 22154086 (Version 1)
Quarter: 2023Q1

REPORT INFORMATION
  Report Type: Spontaneous
  Country: US (occurrence: US)
  Receive Date: 20230330
  Receipt Date: 20230330
  Transmission Date: 20230417
  Serious: No
  Sender: FDA-Public Use
  Company Number: US-ELI_LILLY_AND_COMPANY-US202303015542

PATIENT
  Age: 78 Year
  Sex: Female

DRUGS (2)
  1. TALTZ [Suspect]
     Active Substance: IXEKIZUMAB
     Indication: Psoriasis
     Dosage: 160 MG, OTHER, LOADING DOSE
     Route: 065
     Dates: start: 20230126
  2. TALTZ [Suspect]
     Active Substance: IXEKIZUMAB
     Dosage: 80 MG, OTHER, INITIAL DOSE
     Route: 065

REACTIONS (3)
  - Gastric dilatation [Unknown]
  - Paracentesis [Unknown]
  - Ascites [Unknown]

NARRATIVE: CASE EVENT DATE: 20230201
